FAERS Safety Report 5187731-3 (Version None)
Quarter: 2006Q4

REPORT INFORMATION
  Report Type: 
  Country: None (occurrence: None)
  Receive Date: 20061221
  Receipt Date: 20061026
  Transmission Date: 20070319
  Serious: Yes (Life-Threatening, Hospitalization)
  Sender: FDA-Public Use
  Company Number: US-BAYER-200616168BWH

PATIENT
  Age: 67 Year
  Sex: Female
  Weight: 80 kg

DRUGS (5)
  1. TRASYLOL [Suspect]
     Indication: DRUG USE FOR UNKNOWN INDICATION
     Dosage: UNIT DOSE: 2000000 KIU
     Route: 042
     Dates: start: 20061023, end: 20061023
  2. TRASYLOL [Suspect]
     Dosage: UNIT DOSE: 2000000 KIU
     Route: 042
     Dates: start: 20061023, end: 20061023
  3. TRASYLOL [Suspect]
     Dosage: UNIT DOSE: 2000000 KIU
     Route: 042
     Dates: start: 20061023, end: 20061023
  4. HEPARIN [Suspect]
     Indication: DRUG USE FOR UNKNOWN INDICATION
  5. AMICAR [Suspect]
     Dates: start: 20061023

REACTIONS (5)
  - GRAFT THROMBOSIS [None]
  - HAEMORRHAGE [None]
  - HEPARIN RESISTANCE [None]
  - HYPOTENSION [None]
  - INTRACARDIAC THROMBUS [None]
